FAERS Safety Report 19584634 (Version 1)
Quarter: 2021Q3

REPORT INFORMATION
  Report Type: Spontaneous
  Country: NZ (occurrence: NZ)
  Receive Date: 20210720
  Receipt Date: 20210720
  Transmission Date: 20211014
  Serious: Yes (Other)
  Sender: FDA-Public Use
  Company Number: NZ-MYLANLABS-2021M1044210

PATIENT
  Age: 81 Year
  Sex: Male

DRUGS (5)
  1. ASPIRIN                            /00002701/ [Concomitant]
     Active Substance: ASPIRIN
     Indication: ANTIPLATELET THERAPY
     Dosage: 100 MILLIGRAM, QD
     Route: 065
  2. DABIGATRAN [Interacting]
     Active Substance: DABIGATRAN
     Indication: CEREBROVASCULAR ACCIDENT
     Dosage: 110 MILLIGRAM, BID
     Route: 065
  3. OMEPRAZOLE. [Suspect]
     Active Substance: OMEPRAZOLE
     Indication: DRUG THERAPY
     Dosage: 20 MILLIGRAM, QD
     Route: 065
  4. DABIGATRAN [Interacting]
     Active Substance: DABIGATRAN
     Indication: ANTICOAGULANT THERAPY
  5. DILTIAZEM. [Concomitant]
     Active Substance: DILTIAZEM
     Indication: PRODUCT USED FOR UNKNOWN INDICATION
     Dosage: 360 MILLIGRAM, QD
     Route: 065

REACTIONS (3)
  - Coagulation time shortened [Unknown]
  - Drug interaction [Unknown]
  - Treatment failure [Unknown]
